FAERS Safety Report 25299779 (Version 1)
Quarter: 2025Q2

REPORT INFORMATION
  Report Type: Report from Study
  Country: CA (occurrence: CA)
  Receive Date: 20250512
  Receipt Date: 20250512
  Transmission Date: 20250717
  Serious: Yes (Death, Other)
  Sender: CSL BEHRING
  Company Number: CA-BEH-2025204274

PATIENT
  Age: 79 Year
  Sex: Male
  Weight: 60 kg

DRUGS (1)
  1. HAEMATE P [Suspect]
     Active Substance: ANTIHEMOPHILIC FACTOR HUMAN
     Indication: Von Willebrand^s disease
     Dosage: 3000 IU, TIW
     Route: 042
     Dates: start: 20230127

REACTIONS (1)
  - Death [Fatal]

NARRATIVE: CASE EVENT DATE: 20240101
